FAERS Safety Report 25466390 (Version 1)
Quarter: 2025Q2

REPORT INFORMATION
  Report Type: Report from Study
  Country: ZA (occurrence: ZA)
  Receive Date: 20250623
  Receipt Date: 20250623
  Transmission Date: 20250717
  Serious: Yes (Death)
  Sender: ROCHE
  Company Number: ZA-ROCHE-10000317770

PATIENT
  Age: 61 Year
  Sex: Male

DRUGS (1)
  1. VABYSMO [Suspect]
     Active Substance: FARICIMAB-SVOA
     Indication: Macular degeneration
     Route: 050
     Dates: start: 20240625, end: 20250520

REACTIONS (1)
  - Death [Fatal]

NARRATIVE: CASE EVENT DATE: 20250526
